FAERS Safety Report 13469403 (Version 2)
Quarter: 2017Q2

REPORT INFORMATION
  Report Type: Spontaneous
  Country: US (occurrence: US)
  Receive Date: 20170421
  Receipt Date: 20170425
  Transmission Date: 20170830
  Serious: No
  Sender: FDA-Public Use
  Company Number: US-009507513-1704USA011163

PATIENT
  Age: 18 Year
  Sex: Female
  Weight: 68.93 kg

DRUGS (1)
  1. NEXPLANON [Suspect]
     Active Substance: ETONOGESTREL
     Indication: CONTRACEPTION
     Dosage: 1 IMPLANT / 3 YEARS, IN LEFT ARM
     Route: 059
     Dates: start: 20160209

REACTIONS (7)
  - Irritability [Recovered/Resolved]
  - Fatigue [Unknown]
  - Vaginal haemorrhage [Unknown]
  - Back pain [Unknown]
  - Amenorrhoea [Recovered/Resolved]
  - Mood swings [Unknown]
  - Headache [Unknown]

NARRATIVE: CASE EVENT DATE: 20160209
